FAERS Safety Report 14111738 (Version 1)
Quarter: 2017Q4

REPORT INFORMATION
  Report Type: Spontaneous
  Country: FR (occurrence: FR)
  Receive Date: 20171020
  Receipt Date: 20171020
  Transmission Date: 20180321
  Serious: Yes (Other)
  Sender: FDA-Public Use
  Company Number: FR-MERCK KGAA-2030965

PATIENT
  Age: 59 Year
  Sex: Female

DRUGS (1)
  1. NOVOTHYROX [Suspect]
     Active Substance: LEVOTHYROXINE SODIUM
     Indication: PRODUCT USED FOR UNKNOWN INDICATION
     Dates: start: 201706

REACTIONS (6)
  - Constipation [None]
  - Asthenia [None]
  - Skin disorder [None]
  - Muscle spasms [None]
  - Hyperthyroidism [Not Recovered/Not Resolved]
  - Alopecia [None]

NARRATIVE: CASE EVENT DATE: 2017
